FAERS Safety Report 8597844-1 (Version None)
Quarter: 2012Q3

REPORT INFORMATION
  Report Type: 
  Country: None (occurrence: None)
  Receive Date: 20120816
  Receipt Date: 20120814
  Transmission Date: 20120928
  Serious: Yes (Other)
  Sender: FDA-Public Use
  Company Number: PHHY2012BR070396

PATIENT
  Age: 70 Year
  Sex: Male

DRUGS (2)
  1. AFINITOR [Suspect]
  2. SANDOSTATIN LAR [Suspect]

REACTIONS (2)
  - OEDEMA [None]
  - ASCITES [None]
